FAERS Safety Report 5607438-5 (Version None)
Quarter: 2008Q1

REPORT INFORMATION
  Report Type: 
  Country: None (occurrence: None)
  Receive Date: 20080130
  Receipt Date: 20080121
  Transmission Date: 20080703
  Serious: No
  Sender: FDA-Public Use
  Company Number: US-JNJFOC-20080105493

PATIENT
  Sex: Male
  Weight: 77.11 kg

DRUGS (4)
  1. INVEGA [Suspect]
     Route: 048
  2. INVEGA [Suspect]
     Indication: BIPOLAR DISORDER
     Route: 048
  3. BENICAR [Concomitant]
     Indication: HYPERTENSION
  4. SEROQUEL [Concomitant]
     Indication: SLEEP DISORDER

REACTIONS (5)
  - ANXIETY [None]
  - DIZZINESS [None]
  - PANIC DISORDER [None]
  - STOMACH DISCOMFORT [None]
  - WRONG TECHNIQUE IN DRUG USAGE PROCESS [None]
